FAERS Safety Report 6632151-5 (Version None)
Quarter: 2010Q1

REPORT INFORMATION
  Report Type: 
  Country: None (occurrence: None)
  Receive Date: 20100310
  Receipt Date: 20100105
  Transmission Date: 20100710
  Serious: No
  Sender: FDA-Public Use
  Company Number: 2010002165

PATIENT
  Age: 48 Year
  Sex: Female
  Weight: 55.8 kg

DRUGS (4)
  1. SELZENTRY [Suspect]
     Indication: HIV INFECTION
     Dates: start: 20091117
  2. KALETRA [Suspect]
     Indication: HIV INFECTION
     Dosage: 200/50 MG (1 DOSAGE FORMS),
     Dates: start: 20091117
  3. RALTEGRAVIR (RALTEGRAVIR) [Suspect]
     Indication: HIV INFECTION
     Dates: start: 20091117
  4. LISINOPRIL [Concomitant]

REACTIONS (4)
  - ASTHENIA [None]
  - HOT FLUSH [None]
  - NAUSEA [None]
  - WEIGHT DECREASED [None]
